FAERS Safety Report 4508629-7 (Version None)
Quarter: 2004Q4

REPORT INFORMATION
  Report Type: 
  Country: None (occurrence: None)
  Receive Date: 20041123
  Receipt Date: 20040506
  Transmission Date: 20050328
  Serious: No
  Sender: FDA-Public Use
  Company Number: US-GLAXOSMITHKLINE-A0509817A

PATIENT
  Age: 62 Year
  Sex: Female

DRUGS (5)
  1. WELLBUTRIN [Suspect]
     Indication: DEPRESSION
     Dosage: 150MG PER DAY
     Route: 048
     Dates: start: 20040301
  2. LORAZEPAM [Concomitant]
  3. DONNATAL [Concomitant]
  4. SYNTHROID [Concomitant]
  5. NEXIUM [Concomitant]

REACTIONS (3)
  - INSOMNIA [None]
  - NIGHTMARE [None]
  - THYROID FUNCTION TEST ABNORMAL [None]
